FAERS Safety Report 24388294 (Version 1)
Quarter: 2024Q4

REPORT INFORMATION
  Report Type: Spontaneous
  Country: JP (occurrence: JP)
  Receive Date: 20241002
  Receipt Date: 20241002
  Transmission Date: 20250115
  Serious: Yes (Other)
  Sender: ELI LILLY AND CO
  Company Number: JP-ELI_LILLY_AND_COMPANY-JP202409017044

PATIENT

DRUGS (1)
  1. OLUMIANT [Suspect]
     Active Substance: BARICITINIB
     Indication: Rheumatoid arthritis
     Route: 048

REACTIONS (1)
  - Liver disorder [Recovered/Resolved]
